FAERS Safety Report 4376226-2 (Version None)
Quarter: 2004Q2

REPORT INFORMATION
  Report Type: 
  Country: None (occurrence: None)
  Receive Date: 20040608
  Receipt Date: 20030409
  Transmission Date: 20050107
  Serious: Yes (Other)
  Sender: FDA-Public Use
  Company Number: 200311205BCC

PATIENT
  Age: 20 Year
  Sex: Female
  Weight: 58.9676 kg

DRUGS (1)
  1. ALEVE [Suspect]
     Indication: HEADACHE
     Dosage: 440 MG, ONCE ,ORAL
     Route: 048
     Dates: start: 20030407

REACTIONS (7)
  - DYSPNOEA [None]
  - HEADACHE [None]
  - HYPERSENSITIVITY [None]
  - LOSS OF CONSCIOUSNESS [None]
  - PRURITUS GENERALISED [None]
  - SWELLING FACE [None]
  - URTICARIA [None]
